FAERS Safety Report 4282175-0 (Version None)
Quarter: 2004Q1

REPORT INFORMATION
  Report Type: 
  Country: None (occurrence: None)
  Receive Date: 20040130
  Receipt Date: 20040120
  Transmission Date: 20041129
  Serious: Yes (Other)
  Sender: FDA-Public Use
  Company Number: JP-BRISTOL-MYERS SQUIBB COMPANY-12483160

PATIENT
  Age: 42 Year
  Sex: Female

DRUGS (1)
  1. KENACORT [Suspect]
     Dates: start: 20030201

REACTIONS (1)
  - ANAPHYLACTIC SHOCK [None]
